FAERS Safety Report 8114041-4 (Version None)
Quarter: 2012Q1

REPORT INFORMATION
  Report Type: 
  Country: None (occurrence: None)
  Receive Date: 20120203
  Receipt Date: 20120125
  Transmission Date: 20120608
  Serious: Yes (Other)
  Sender: FDA-Public Use
  Company Number: US-ASTRAZENECA-2012SE05139

PATIENT
  Age: 52 Year
  Sex: Male

DRUGS (7)
  1. BUDESONIDE [Suspect]
     Indication: GRAFT VERSUS HOST DISEASE
     Dosage: 3 MG/DAY
     Route: 048
  2. TACROLIMUS [Concomitant]
     Indication: IMMUNOSUPPRESSION
  3. BUSULFAN [Concomitant]
     Indication: IMMUNOSUPPRESSION
  4. AZOLES [Interacting]
     Indication: FUNGAL INFECTION
  5. PREDNISONE TAB [Concomitant]
     Indication: GRAFT VERSUS HOST DISEASE
  6. CYCLOPHOSPHAMIDE [Concomitant]
     Indication: IMMUNOSUPPRESSION
  7. ALEMTUZUMAB [Concomitant]
     Indication: IMMUNOSUPPRESSION

REACTIONS (2)
  - DRUG INTERACTION [None]
  - CUSHING'S SYNDROME [None]
